FAERS Safety Report 5501840-8 (Version None)
Quarter: 2007Q4

REPORT INFORMATION
  Report Type: 
  Country: None (occurrence: None)
  Receive Date: 20071030
  Receipt Date: 20070119
  Transmission Date: 20080405
  Serious: No
  Sender: FDA-Public Use
  Company Number: A0636329A

PATIENT
  Age: 57 Year
  Sex: Female

DRUGS (8)
  1. SEREVENT [Suspect]
     Indication: ASTHMA
     Dosage: 1PUFF TWICE PER DAY
     Route: 055
     Dates: start: 20010101, end: 20060101
  2. FLOVENT [Concomitant]
  3. ALBUTEROL [Concomitant]
  4. CLARITIN [Concomitant]
  5. VERAPAMIL [Concomitant]
  6. TOPAMAX [Concomitant]
  7. LIPITOR [Concomitant]
  8. PRILOSEC [Concomitant]

REACTIONS (3)
  - DIZZINESS [None]
  - DYSPNOEA [None]
  - HEART RATE INCREASED [None]
